FAERS Safety Report 9171711 (Version 1)
Quarter: 2013Q1

REPORT INFORMATION
  Report Type: Spontaneous
  Country: FR (occurrence: None)
  Receive Date: 20130125
  Receipt Date: 20130125
  Transmission Date: 20140127
  Serious: Yes (Hospitalization)
  Sender: FDA-Public Use
  Company Number: 2013034519

PATIENT
  Age: 78 Year
  Sex: Female

DRUGS (4)
  1. PRIVIGEN [Suspect]
     Indication: MYOPATHY
     Route: 042
     Dates: start: 20121105, end: 20121107
  2. AMLODIPINE (AMLODIPINE) [Concomitant]
  3. CALCIDOSE (CALCIUM CARBONATE) [Concomitant]
  4. ZESTRIL (LISINOPRIL) [Concomitant]

REACTIONS (4)
  - Purpura [None]
  - Erythema [None]
  - Oedema peripheral [None]
  - Pyrexia [None]
